FAERS Safety Report 12909153 (Version 1)
Quarter: 2016Q4

REPORT INFORMATION
  Report Type: Spontaneous
  Country: US (occurrence: US)
  Receive Date: 20161103
  Receipt Date: 20161103
  Transmission Date: 20170207
  Serious: No
  Sender: FDA-Public Use
  Company Number: US-JAZZ-2016-US-016946

PATIENT
  Sex: Female

DRUGS (31)
  1. COMPAZINE [Concomitant]
     Active Substance: PROCHLORPERAZINE MALEATE
  2. LYSINE [Concomitant]
     Active Substance: LYSINE
  3. CAMBIA [Concomitant]
     Active Substance: DICLOFENAC POTASSIUM
  4. MULTIVITAMINS [Concomitant]
     Active Substance: VITAMINS
  5. NUVIGIL [Concomitant]
     Active Substance: ARMODAFINIL
  6. RITALIN [Concomitant]
     Active Substance: METHYLPHENIDATE HYDROCHLORIDE
  7. XYREM [Suspect]
     Active Substance: SODIUM OXYBATE
     Indication: NARCOLEPSY
     Dosage: 2.25 G, BID
     Route: 048
     Dates: start: 201607, end: 201607
  8. VITAMIN D3 [Concomitant]
     Active Substance: CHOLECALCIFEROL
  9. BACLOFEN. [Concomitant]
     Active Substance: BACLOFEN
  10. XELJANZ [Concomitant]
     Active Substance: TOFACITINIB CITRATE
  11. XYREM [Suspect]
     Active Substance: SODIUM OXYBATE
     Dosage: 4.5 G, BID
     Route: 048
     Dates: start: 201608
  12. CYMBALTA [Concomitant]
     Active Substance: DULOXETINE HYDROCHLORIDE
  13. NALTREXONE HCL [Concomitant]
     Active Substance: NALTREXONE HYDROCHLORIDE
  14. VYVANSE [Concomitant]
     Active Substance: LISDEXAMFETAMINE DIMESYLATE
  15. WESTHROID [Concomitant]
     Active Substance: THYROGLOBULIN
  16. PROAIR HFA [Concomitant]
     Active Substance: ALBUTEROL SULFATE
  17. MELATONIN [Concomitant]
     Active Substance: MELATONIN
  18. NAPROXEN SODIUM. [Concomitant]
     Active Substance: NAPROXEN SODIUM
  19. PROPRANOLOL [Concomitant]
     Active Substance: PROPRANOLOL\PROPRANOLOL HYDROCHLORIDE
  20. RELPAX [Concomitant]
     Active Substance: ELETRIPTAN HYDROBROMIDE
  21. ZONISAMIDE. [Concomitant]
     Active Substance: ZONISAMIDE
  22. BIOTIN [Concomitant]
     Active Substance: BIOTIN
  23. PROGESTERONE. [Concomitant]
     Active Substance: PROGESTERONE
  24. VALTREX [Concomitant]
     Active Substance: VALACYCLOVIR HYDROCHLORIDE
  25. XYREM [Suspect]
     Active Substance: SODIUM OXYBATE
     Indication: CATAPLEXY
     Dosage: DOSE ADJUSTMENTS
     Route: 048
     Dates: start: 201607, end: 201608
  26. ARMOUR THYROID [Concomitant]
     Active Substance: THYROID, PORCINE
  27. CATAFLAM [Concomitant]
     Active Substance: DICLOFENAC POTASSIUM
  28. ESTRADIOL. [Concomitant]
     Active Substance: ESTRADIOL
  29. HYDROCORTISONE. [Concomitant]
     Active Substance: HYDROCORTISONE
  30. PANTOPRAZOLE SODIUM. [Concomitant]
     Active Substance: PANTOPRAZOLE SODIUM
  31. PRAMIPEXOLE. [Concomitant]
     Active Substance: PRAMIPEXOLE

REACTIONS (3)
  - Condition aggravated [Not Recovered/Not Resolved]
  - Migraine [Unknown]
  - Gastrooesophageal reflux disease [Not Recovered/Not Resolved]
